FAERS Safety Report 4519098-5 (Version None)
Quarter: 2004Q4

REPORT INFORMATION
  Report Type: 
  Country: None (occurrence: None)
  Receive Date: 20041206
  Receipt Date: 20041124
  Transmission Date: 20050328
  Serious: Yes (Other)
  Sender: FDA-Public Use
  Company Number: US-BRISTOL-MYERS SQUIBB COMPANY-12776761

PATIENT
  Age: 64 Year
  Sex: Female

DRUGS (3)
  1. ESTRACE [Suspect]
     Indication: HOT FLUSH
  2. PREMARIN [Suspect]
     Indication: HOT FLUSH
  3. PROVERA [Suspect]
     Indication: HOT FLUSH

REACTIONS (1)
  - BREAST CANCER [None]
